FAERS Safety Report 10890819 (Version 2)
Quarter: 2015Q2

REPORT INFORMATION
  Report Type: Spontaneous
  Country: JP (occurrence: JP)
  Receive Date: 20150305
  Receipt Date: 20150603
  Transmission Date: 20150821
  Serious: Yes (Hospitalization)
  Sender: FDA-Public Use
  Company Number: JP-BRISTOL-MYERS SQUIBB COMPANY-BMS-2015-012307

PATIENT
  Age: 81 Year
  Sex: Male
  Weight: 46 kg

DRUGS (10)
  1. METGLUCO [Suspect]
     Active Substance: METFORMIN HYDROCHLORIDE
     Indication: DIABETES MELLITUS
     Dosage: 250 MG, TID
     Route: 048
     Dates: start: 20141105, end: 20141108
  2. TALION                             /01587402/ [Concomitant]
     Active Substance: BEPOTASTINE
     Indication: ECZEMA
     Dosage: 20 MG, BID
     Route: 048
     Dates: start: 20141105
  3. SEIBULE [Concomitant]
     Active Substance: MIGLITOL
     Indication: DIABETES MELLITUS
     Dosage: 75 MG, TID
     Route: 048
     Dates: start: 20141105
  4. CELECOX [Concomitant]
     Active Substance: CELECOXIB
     Indication: BACK PAIN
     Dosage: 100 MG, BID
     Route: 048
     Dates: start: 20141017, end: 20141104
  5. CLARITIN [Concomitant]
     Active Substance: LORATADINE
     Indication: ECZEMA
     Dosage: 10 MG, QD
     Route: 048
     Dates: start: 20141022, end: 20141104
  6. LYRICA [Suspect]
     Active Substance: PREGABALIN
     Indication: BACK PAIN
     Dosage: 25 MG, UNK.4DF
     Route: 048
     Dates: start: 20141105
  7. GLACTIV [Concomitant]
     Active Substance: SITAGLIPTIN
     Indication: DIABETES MELLITUS
     Dosage: 50 MG, QD
     Route: 048
     Dates: start: 20141017
  8. HISPORAN [Concomitant]
     Indication: ECZEMA
     Dosage: 3 MG, BID
     Route: 048
     Dates: start: 20141114
  9. LUPRAC [Concomitant]
     Active Substance: TORSEMIDE
     Indication: OEDEMA PERIPHERAL
     Dosage: 2 MG, QD
     Route: 048
     Dates: start: 20141125
  10. GLUCOBAY [Concomitant]
     Active Substance: ACARBOSE
     Indication: DIABETES MELLITUS
     Dosage: 150 MG, TID
     Route: 048
     Dates: start: 20141017, end: 20141104

REACTIONS (3)
  - Renal impairment [Recovered/Resolved]
  - Muscular weakness [Recovered/Resolved]
  - Oedema peripheral [Recovered/Resolved]

NARRATIVE: CASE EVENT DATE: 20141125
